FAERS Safety Report 8702127 (Version 2)
Quarter: 2012Q4

REPORT INFORMATION
  Report Type: Report from Study
  Country: BE (occurrence: BE)
  Receive Date: 20120803
  Receipt Date: 20120920
  Transmission Date: 20130627
  Serious: Yes (Hospitalization)
  Sender: FDA-Public Use
  Company Number: BE-PFIZER INC-2012185786

PATIENT
  Age: 39 Year
  Sex: Male
  Weight: 91.3 kg

DRUGS (1)
  1. GENOTROPIN [Suspect]
     Indication: HYPOPITUITARISM
     Dosage: 0.2 mg/day, 7 injections/week
     Route: 058
     Dates: start: 20061109, end: 20081212

REACTIONS (1)
  - Sleep disorder [Unknown]
